FAERS Safety Report 5678048-9 (Version None)
Quarter: 2008Q1

REPORT INFORMATION
  Report Type: 
  Country: None (occurrence: None)
  Receive Date: 20080324
  Receipt Date: 20080324
  Transmission Date: 20080703
  Serious: Yes (Hospitalization)
  Sender: FDA-Public Use
  Company Number: None

PATIENT
  Sex: Male
  Weight: 77.5651 kg

DRUGS (1)
  1. CHANTIX [Suspect]
     Indication: NICOTINE DEPENDENCE
     Dosage: PO
     Route: 048
     Dates: start: 20071201

REACTIONS (2)
  - MENTAL STATUS CHANGES [None]
  - SUICIDE ATTEMPT [None]
